FAERS Safety Report 12292702 (Version 1)
Quarter: 2016Q2

REPORT INFORMATION
  Report Type: Report from Study
  Country: US (occurrence: US)
  Receive Date: 20160421
  Receipt Date: 20160421
  Transmission Date: 20160815
  Serious: No
  Sender: FDA-Public Use
  Company Number: US-AMGEN-USASL2016020472

PATIENT
  Age: 71 Year
  Sex: Female

DRUGS (3)
  1. REPATHA [Suspect]
     Active Substance: EVOLOCUMAB
     Indication: PRODUCT USED FOR UNKNOWN INDICATION
     Dosage: UNK
     Route: 065
  2. OXYCODONE                          /00045603/ [Concomitant]
     Active Substance: OXYCODONE
     Indication: PAIN
  3. GABAPENTIN. [Concomitant]
     Active Substance: GABAPENTIN
     Indication: PAIN

REACTIONS (8)
  - Chest pain [Unknown]
  - Muscle spasms [Unknown]
  - Chest discomfort [Unknown]
  - Vision blurred [Unknown]
  - Blood pressure increased [Unknown]
  - Decreased appetite [Unknown]
  - Rhinorrhoea [Unknown]
  - Herpes zoster [Not Recovered/Not Resolved]
